FAERS Safety Report 6508047-6 (Version None)
Quarter: 2009Q4

REPORT INFORMATION
  Report Type: 
  Country: None (occurrence: None)
  Receive Date: 20091221
  Receipt Date: 20091216
  Transmission Date: 20100525
  Serious: Yes (Hospitalization)
  Sender: FDA-Public Use
  Company Number: IT-ABBOTT-09P-083-0609322-00

PATIENT
  Sex: Male

DRUGS (3)
  1. CLARITHROMYCIN [Suspect]
     Indication: PYREXIA
     Route: 048
     Dates: start: 20091105, end: 20091107
  2. TAMIFLU [Suspect]
     Indication: H1N1 INFLUENZA
     Dates: start: 20091105, end: 20091107
  3. TACHIPIRINA [Concomitant]
     Indication: DRUG USE FOR UNKNOWN INDICATION

REACTIONS (2)
  - PRURITUS GENERALISED [None]
  - RASH ERYTHEMATOUS [None]
